FAERS Safety Report 4954391-3 (Version None)
Quarter: 2006Q1

REPORT INFORMATION
  Report Type: 
  Country: None (occurrence: None)
  Receive Date: 20060322
  Receipt Date: 20060310
  Transmission Date: 20060701
  Serious: Yes (Hospitalization)
  Sender: FDA-Public Use
  Company Number: 2006027652

PATIENT
  Age: 39 Year
  Sex: Female
  Weight: 113 kg

DRUGS (1)
  1. GENOTROPIN [Suspect]
     Indication: HYPOPITUITARISM
     Dosage: 0.6 MG (0.6 MG, DAILY)
     Dates: start: 20000914

REACTIONS (2)
  - NEOPLASM RECURRENCE [None]
  - PITUITARY TUMOUR BENIGN [None]
